FAERS Safety Report 15139494 (Version 1)
Quarter: 2018Q3

REPORT INFORMATION
  Report Type: Report from Study
  Country: GB (occurrence: GB)
  Receive Date: 20180713
  Receipt Date: 20180713
  Transmission Date: 20181010
  Serious: Yes (Hospitalization)
  Sender: FDA-Public Use
  Company Number: GB-ROCHE-2050789

PATIENT
  Sex: Female

DRUGS (3)
  1. ROACTEMRA [Suspect]
     Active Substance: TOCILIZUMAB
     Indication: RHEUMATOID ARTHRITIS
     Route: 058
     Dates: start: 20150917
  2. OMEPRAZOL [Concomitant]
     Active Substance: OMEPRAZOLE
  3. CITALOPRAM [Concomitant]
     Active Substance: CITALOPRAM HYDROBROMIDE

REACTIONS (9)
  - Gingivitis [Unknown]
  - Eye swelling [Unknown]
  - Infection [Unknown]
  - Hordeolum [Unknown]
  - Gingival disorder [Unknown]
  - Gingival swelling [Unknown]
  - Abscess [Unknown]
  - Mobility decreased [Unknown]
  - Gingival abscess [Unknown]
